FAERS Safety Report 18511661 (Version 5)
Quarter: 2022Q2

REPORT INFORMATION
  Report Type: Spontaneous
  Country: US (occurrence: US)
  Receive Date: 20201117
  Receipt Date: 20220526
  Transmission Date: 20220721
  Serious: Yes (Hospitalization, Other)
  Sender: FDA-Public Use
  Company Number: US-PFIZER INC-2020452935

PATIENT
  Age: 78 Year
  Sex: Female

DRUGS (1)
  1. RETACRIT [Suspect]
     Active Substance: EPOETIN ALFA-EPBX
     Indication: Haemoglobin abnormal
     Dosage: 40000 IU

REACTIONS (7)
  - Hip fracture [Unknown]
  - Lower limb fracture [Unknown]
  - Limb injury [Unknown]
  - Loss of consciousness [Unknown]
  - Movement disorder [Unknown]
  - Dyspnoea [Unknown]
  - Haemoglobin decreased [Unknown]
